FAERS Safety Report 24225561 (Version 1)
Quarter: 2024Q3

REPORT INFORMATION
  Report Type: Report from Study
  Country: BE (occurrence: None)
  Receive Date: 20240820
  Receipt Date: 20240820
  Transmission Date: 20241016
  Serious: Yes (Other)
  Sender: ASTRAZENECA
  Company Number: 2022A396334

PATIENT

DRUGS (2)
  1. IMFINZI [Suspect]
     Active Substance: DURVALUMAB
     Dates: start: 20220524
  2. IMFINZI [Suspect]
     Active Substance: DURVALUMAB

REACTIONS (1)
  - Lung infiltration [Recovered/Resolved]
